FAERS Safety Report 5401844-X (Version None)
Quarter: 2007Q3

REPORT INFORMATION
  Report Type: 
  Country: None (occurrence: None)
  Receive Date: 20070731
  Receipt Date: 20070726
  Transmission Date: 20080115
  Serious: Yes (Hospitalization, Other)
  Sender: FDA-Public Use
  Company Number: JP-ROXANE LABORATORIES, INC-2007-BP-18090NB

PATIENT
  Age: 60 Year
  Sex: Female

DRUGS (3)
  1. MOBIC [Suspect]
     Indication: MUSCULOSKELETAL PAIN
     Route: 048
  2. BEPRICOR [Suspect]
     Indication: TACHYCARDIA
     Route: 048
     Dates: start: 20070718, end: 20070726
  3. METHOTREXATE SODIUM [Suspect]
     Route: 048

REACTIONS (1)
  - AGRANULOCYTOSIS [None]
